FAERS Safety Report 7479416-5 (Version None)
Quarter: 2011Q2

REPORT INFORMATION
  Report Type: 
  Country: None (occurrence: None)
  Receive Date: 20110513
  Receipt Date: 20110511
  Transmission Date: 20111010
  Serious: Yes (Life-Threatening, Hospitalization)
  Sender: FDA-Public Use
  Company Number: JP-PFIZER INC-2011078635

PATIENT
  Age: 83 Year
  Sex: Female
  Weight: 50.7 kg

DRUGS (2)
  1. ZYLORIC ^FAES^ [Concomitant]
     Indication: HYPERURICAEMIA
     Dosage: 200 MG, 2X/DAY
     Route: 048
     Dates: start: 20110310
  2. SUTENT [Suspect]
     Indication: RENAL CELL CARCINOMA
     Dosage: 37.5 MG, 1X/DAY
     Route: 048
     Dates: start: 20110302, end: 20110326

REACTIONS (3)
  - ANURIA [None]
  - RENAL FAILURE ACUTE [None]
  - CARDIAC FAILURE [None]
